FAERS Safety Report 21796382 (Version 5)
Quarter: 2023Q1

REPORT INFORMATION
  Report Type: Spontaneous
  Country: US (occurrence: US)
  Receive Date: 20221229
  Receipt Date: 20230310
  Transmission Date: 20230418
  Serious: Yes (Hospitalization, Other)
  Sender: FDA-Public Use
  Company Number: US-UNITED THERAPEUTICS-UNT-2022-030645

PATIENT
  Age: 38 Year
  Sex: Female
  Weight: 104.31 kg

DRUGS (6)
  1. REMODULIN [Suspect]
     Active Substance: TREPROSTINIL
     Indication: Pulmonary arterial hypertension
     Dosage: 0.043 ?G/KG, CONTINUING
     Route: 058
  2. REMODULIN [Suspect]
     Active Substance: TREPROSTINIL
     Dosage: UNK, CONTINUING
     Route: 058
  3. REMODULIN [Suspect]
     Active Substance: TREPROSTINIL
     Dosage: UNK, CONTINUING
     Route: 058
     Dates: start: 20210810
  4. DEVICE\POLYURETHANE [Suspect]
     Active Substance: DEVICE\POLYURETHANE
     Indication: Product used for unknown indication
     Dosage: UNK
     Route: 065
  5. OPSUMIT [Concomitant]
     Active Substance: MACITENTAN
     Indication: Product used for unknown indication
     Dosage: UNK
     Route: 065
  6. TADALAFIL [Concomitant]
     Active Substance: TADALAFIL
     Indication: Product used for unknown indication
     Dosage: UNK
     Route: 065

REACTIONS (28)
  - COVID-19 [Unknown]
  - Oxygen saturation decreased [Unknown]
  - Tachycardia [Unknown]
  - Asthma [Unknown]
  - Dyspnoea [Not Recovered/Not Resolved]
  - Environmental exposure [Unknown]
  - Illness [Unknown]
  - Pulmonary hypertension [Unknown]
  - Pericardial effusion [Unknown]
  - Pulmonary arterial pressure increased [Unknown]
  - Headache [Unknown]
  - Swelling [Unknown]
  - Seasonal allergy [Unknown]
  - Nasal congestion [Unknown]
  - Therapy non-responder [Unknown]
  - Dizziness [Unknown]
  - Condition aggravated [Unknown]
  - Migraine [Not Recovered/Not Resolved]
  - Chest pain [Not Recovered/Not Resolved]
  - Nausea [Not Recovered/Not Resolved]
  - Diarrhoea [Not Recovered/Not Resolved]
  - Pain [Not Recovered/Not Resolved]
  - Infusion site pain [Unknown]
  - Unintentional medical device removal [Unknown]
  - Device issue [Recovered/Resolved]
  - Product size issue [Unknown]
  - Product dispensing error [Unknown]
  - Pulse abnormal [Unknown]

NARRATIVE: CASE EVENT DATE: 20221211
